FAERS Safety Report 7603795-9 (Version None)
Quarter: 2011Q3

REPORT INFORMATION
  Report Type: 
  Country: None (occurrence: None)
  Receive Date: 20110712
  Receipt Date: 20110705
  Transmission Date: 20111222
  Serious: Yes (Death)
  Sender: FDA-Public Use
  Company Number: US-VIIV HEALTHCARE LIMITED-A0936205A

PATIENT
  Age: 30 Year
  Sex: Male

DRUGS (1)
  1. EPZICOM [Suspect]
     Route: 065
     Dates: start: 20110208

REACTIONS (1)
  - DEATH [None]
